FAERS Safety Report 7347124-7 (Version None)
Quarter: 2011Q1

REPORT INFORMATION
  Report Type: 
  Country: None (occurrence: None)
  Receive Date: 20110311
  Receipt Date: 20110228
  Transmission Date: 20110831
  Serious: Yes (Hospitalization)
  Sender: FDA-Public Use
  Company Number: PHHY2011GB15972

PATIENT
  Age: 86 Year
  Sex: Female

DRUGS (6)
  1. ASPIRIN [Concomitant]
     Dosage: 75 MG, QD
  2. BISOPROLOL FUMARATE [Suspect]
     Indication: ACUTE CORONARY SYNDROME
     Dosage: 2.5 MG, QD
     Route: 048
     Dates: start: 20110105
  3. BENDROFLUMETHIAZIDE [Concomitant]
     Dosage: 2.5 MG, QD
  4. CLOPIDOGREL [Concomitant]
     Dosage: 75 MG, QD
  5. VALSARTAN [Concomitant]
     Dosage: 160 MG, QD
     Route: 048
  6. AMLODIPINE [Concomitant]
     Dosage: 5 MG, QD

REACTIONS (6)
  - MUSCLE SPASMS [None]
  - PARAESTHESIA [None]
  - MALAISE [None]
  - GASTRIC DISORDER [None]
  - HYPOAESTHESIA [None]
  - NAUSEA [None]
